FAERS Safety Report 14683265 (Version 1)
Quarter: 2018Q1

REPORT INFORMATION
  Report Type: Spontaneous
  Country: US (occurrence: US)
  Receive Date: 20180326
  Receipt Date: 20180326
  Transmission Date: 20180509
  Serious: Yes (Other)
  Sender: FDA-Public Use
  Company Number: None

PATIENT
  Age: 73 Year
  Sex: Female
  Weight: 49.44 kg

DRUGS (7)
  1. ATORVASTATIN CALCIUM TABS 40MG [Suspect]
     Active Substance: ATORVASTATIN CALCIUM
  2. CIMZIA [Concomitant]
     Active Substance: CERTOLIZUMAB PEGOL
  3. CARLSON CALCIUM [Concomitant]
  4. VITAMIN D3 [Concomitant]
     Active Substance: CHOLECALCIFEROL
  5. FOLIC ACID. [Concomitant]
     Active Substance: FOLIC ACID
  6. FISH OIL [Concomitant]
     Active Substance: FISH OIL
  7. ASA [Concomitant]
     Active Substance: ASPIRIN

REACTIONS (2)
  - Weight decreased [None]
  - Muscle atrophy [None]

NARRATIVE: CASE EVENT DATE: 20170518
